FAERS Safety Report 17798094 (Version 1)
Quarter: 2020Q2

REPORT INFORMATION
  Report Type: Spontaneous
  Country: IT (occurrence: IT)
  Receive Date: 20200518
  Receipt Date: 20200518
  Transmission Date: 20200714
  Serious: Yes (Hospitalization, Other)
  Sender: FDA-Public Use
  Company Number: IT-TEVA-2020-IT-1236658

PATIENT
  Age: 4 Decade
  Sex: Female

DRUGS (9)
  1. AZATIOPRINA [Suspect]
     Active Substance: AZATHIOPRINE
     Indication: GASTROENTERITIS EOSINOPHILIC
     Dosage: 50 MILLIGRAM DAILY;
     Route: 065
  2. PREDNISONE. [Suspect]
     Active Substance: PREDNISONE
     Dosage: 25 MILLIGRAM DAILY;
     Route: 065
  3. PREDNISONE. [Suspect]
     Active Substance: PREDNISONE
     Dosage: 37.5 MILLIGRAM DAILY;
     Route: 065
  4. COLECALCIFEROL [Suspect]
     Active Substance: CHOLECALCIFEROL
     Indication: GASTROENTERITIS EOSINOPHILIC
     Dosage: 1 DOSAGE FORMS DAILY;
     Route: 065
  5. PROGESTERONE. [Suspect]
     Active Substance: PROGESTERONE
     Indication: VAGINAL HAEMORRHAGE
     Route: 067
  6. PREDNISONE. [Suspect]
     Active Substance: PREDNISONE
     Indication: GASTROENTERITIS EOSINOPHILIC
     Dosage: 50 MILLIGRAM DAILY;
     Route: 065
  7. PREDNISONE. [Suspect]
     Active Substance: PREDNISONE
     Dosage: 5 MILLIGRAM DAILY;
     Route: 065
  8. LACTIC FERMENTS [LACTOBACILLUS ACIDOPHILUS] [Suspect]
     Active Substance: LACTOBACILLUS ACIDOPHILUS
     Indication: VAGINAL DISCHARGE
     Route: 065
  9. DEQUALINIUM CHLORIDE [Suspect]
     Active Substance: DEQUALINIUM CHLORIDE
     Indication: VAGINAL DISCHARGE
     Route: 065

REACTIONS (5)
  - Drug ineffective [Unknown]
  - Premature delivery [Unknown]
  - Normal newborn [Unknown]
  - Hepatitis cholestatic [Unknown]
  - Maternal exposure during pregnancy [Unknown]
